FAERS Safety Report 15023117 (Version 7)
Quarter: 2021Q2

REPORT INFORMATION
  Report Type: Spontaneous
  Country: IL (occurrence: IL)
  Receive Date: 20180618
  Receipt Date: 20210625
  Transmission Date: 20210716
  Serious: Yes (Other)
  Sender: FDA-Public Use
  Company Number: IL-ALEXION PHARMACEUTICALS INC.-A201807345

PATIENT
  Age: 7 Year
  Sex: Male
  Weight: 21 kg

DRUGS (5)
  1. STRENSIQ [Suspect]
     Active Substance: ASFOTASE ALFA
     Dosage: UNK
     Route: 058
     Dates: start: 201710
  2. BETMIGA [Concomitant]
     Active Substance: MIRABEGRON
     Indication: PRODUCT USED FOR UNKNOWN INDICATION
     Dosage: 25 MG, QD
     Route: 065
  3. LOSARTAN. [Concomitant]
     Active Substance: LOSARTAN
     Indication: PRODUCT USED FOR UNKNOWN INDICATION
     Dosage: 12.5 MG, QD
     Route: 065
  4. STRENSIQ [Suspect]
     Active Substance: ASFOTASE ALFA
     Indication: HYPOPHOSPHATASIA
     Dosage: 30 MG, TIW (NEARLY 2 MG/KG/DOSE X2/WK.)
     Route: 058
     Dates: start: 20170901
  5. STRENSIQ [Suspect]
     Active Substance: ASFOTASE ALFA
     Dosage: 40 MG, TIW
     Route: 058
     Dates: start: 201709

REACTIONS (4)
  - Urine albumin/creatinine ratio increased [Recovering/Resolving]
  - Inappropriate schedule of product administration [Not Recovered/Not Resolved]
  - Proteinuria [Recovering/Resolving]
  - Albuminuria [Recovering/Resolving]

NARRATIVE: CASE EVENT DATE: 201710
